FAERS Safety Report 4722998-4 (Version None)
Quarter: 2005Q3

REPORT INFORMATION
  Report Type: 
  Country: None (occurrence: None)
  Receive Date: 20050722
  Receipt Date: 20050720
  Transmission Date: 20060218
  Serious: Yes (Other)
  Sender: FDA-Public Use
  Company Number: CH-MERCK-0507CHE00019

PATIENT
  Age: 71 Year
  Sex: Male

DRUGS (2)
  1. VIOXX [Suspect]
     Indication: VEIN PAIN
     Route: 048
     Dates: start: 20030401, end: 20040101
  2. VIOXX [Suspect]
     Route: 048
     Dates: start: 20040101

REACTIONS (2)
  - BLINDNESS [None]
  - RETINAL VASCULAR THROMBOSIS [None]
